FAERS Safety Report 5760010-9 (Version None)
Quarter: 2008Q2

REPORT INFORMATION
  Report Type: 
  Country: None (occurrence: None)
  Receive Date: 20080605
  Receipt Date: 20080526
  Transmission Date: 20081010
  Serious: Yes (Other)
  Sender: FDA-Public Use
  Company Number: GR-ABBOTT-08P-066-0453513-00

PATIENT
  Sex: Male

DRUGS (13)
  1. ZEMPLAR [Suspect]
     Indication: HYPERPARATHYROIDISM SECONDARY
     Route: 042
     Dates: start: 20080411
  2. DARBEPOETIN ALFA [Concomitant]
     Indication: ANAEMIA
     Route: 042
     Dates: start: 20060101
  3. SEVELAMER [Concomitant]
     Indication: HYPERPHOSPHATAEMIA
     Route: 048
     Dates: start: 20060101
  4. FELODIPINE [Concomitant]
     Indication: HYPERTENSION
     Route: 048
     Dates: start: 20060101
  5. METOPROLOL TARTRATE [Concomitant]
     Indication: CORONARY ARTERY DISEASE
     Route: 048
     Dates: start: 20060101
  6. LORNOXICAM [Concomitant]
     Indication: SCIATICA
     Route: 048
     Dates: start: 20040101
  7. MOXONIDINE [Concomitant]
     Indication: HYPERTENSION
     Route: 048
     Dates: start: 20060101
  8. IRBESARTAN [Concomitant]
     Indication: HYPERTENSION
     Route: 048
     Dates: start: 20060101
  9. DICLOFENAC SODIUM [Concomitant]
     Indication: SCIATICA
     Route: 048
     Dates: start: 20060101
  10. FOLIC ACID [Concomitant]
     Indication: ANAEMIA
     Route: 048
     Dates: start: 20060101
  11. NEUROBION [Concomitant]
     Indication: ANAEMIA
     Route: 042
     Dates: start: 20060101
  12. LEVOCARNITINE [Concomitant]
     Indication: ANAEMIA
     Route: 042
     Dates: start: 20060101
  13. ONE A 1 ML [Concomitant]
     Indication: HYPERPARATHYROIDISM SECONDARY
     Route: 042
     Dates: start: 20060101, end: 20080411

REACTIONS (1)
  - ISCHAEMIA [None]
